FAERS Safety Report 22289071 (Version 1)
Quarter: 2023Q2

REPORT INFORMATION
  Report Type: Spontaneous
  Country: CA (occurrence: CA)
  Receive Date: 20230505
  Receipt Date: 20230505
  Transmission Date: 20230722
  Serious: Yes (Other)
  Sender: FDA-Public Use
  Company Number: CA-BIOMARINAP-CA-2023-150098

PATIENT

DRUGS (8)
  1. VIMIZIM [Suspect]
     Active Substance: ELOSULFASE ALFA
     Indication: Mucopolysaccharidosis IV
     Dosage: 2 MILLIGRAM/KILOGRAM, QW
     Route: 042
     Dates: start: 20141027
  2. VIMIZIM [Suspect]
     Active Substance: ELOSULFASE ALFA
     Dosage: 2 MILLIGRAM/KILOGRAM, QW
     Route: 042
     Dates: start: 20110930, end: 201410
  3. IBUPROFEN [Concomitant]
     Active Substance: IBUPROFEN
     Indication: Premedication
     Dosage: 200 MILLIGRAM, SINGLE
     Route: 048
  4. CLARITIN [Concomitant]
     Active Substance: LORATADINE
     Indication: Premedication
     Dosage: 10 MILLIGRAM, SINGLE
     Route: 060
  5. CLARITIN [Concomitant]
     Active Substance: LORATADINE
     Indication: Seasonal allergy
  6. SINGULAIR [Concomitant]
     Active Substance: MONTELUKAST SODIUM
     Indication: Product used for unknown indication
     Dosage: 10 MILLIGRAM, QD
     Route: 048
  7. FLOVENT [Concomitant]
     Active Substance: FLUTICASONE PROPIONATE
     Indication: Asthma
     Dosage: UNK, QD
  8. VENTOLIN [Concomitant]
     Active Substance: ALBUTEROL SULFATE
     Indication: Asthma
     Dosage: UNK, QD

REACTIONS (8)
  - Pancreatic failure [Unknown]
  - Limb deformity [Unknown]
  - Limb discomfort [Unknown]
  - Adjustment disorder [Unknown]
  - Developmental delay [Unknown]
  - Anxiety [Unknown]
  - General physical health deterioration [Unknown]
  - Stress [Unknown]
